FAERS Safety Report 17557698 (Version 3)
Quarter: 2020Q2

REPORT INFORMATION
  Report Type: Report from Study
  Country: None (occurrence: US)
  Receive Date: 20200319
  Receipt Date: 20200530
  Transmission Date: 20200713
  Serious: Yes (Other)
  Sender: FDA-Public Use
  Company Number: US-ABBVIE-20K-163-3325447-00

PATIENT
  Sex: Female

DRUGS (2)
  1. HUMIRA [Suspect]
     Active Substance: ADALIMUMAB
     Indication: ANKYLOSING SPONDYLITIS
     Dosage: CITRATE FREE
     Route: 058
  2. HUMIRA [Suspect]
     Active Substance: ADALIMUMAB
     Indication: PSORIATIC ARTHROPATHY

REACTIONS (24)
  - Upper respiratory tract infection [Recovering/Resolving]
  - Gastrointestinal disorder [Recovering/Resolving]
  - Injection site bruising [Recovered/Resolved]
  - Injection site erythema [Recovered/Resolved]
  - Hypersensitivity [Unknown]
  - Pain [Recovered/Resolved]
  - Sinus disorder [Not Recovered/Not Resolved]
  - Injection site swelling [Recovered/Resolved]
  - Eye irritation [Recovered/Resolved]
  - Condition aggravated [Not Recovered/Not Resolved]
  - Eye irritation [Unknown]
  - Fatigue [Recovering/Resolving]
  - Oropharyngeal discomfort [Unknown]
  - Cough [Recovering/Resolving]
  - Wheezing [Recovering/Resolving]
  - Arthralgia [Not Recovered/Not Resolved]
  - Loss of consciousness [Recovered/Resolved]
  - Rash pruritic [Not Recovered/Not Resolved]
  - Blood pressure increased [Recovered/Resolved]
  - Dyspnoea [Recovering/Resolving]
  - Upper-airway cough syndrome [Not Recovered/Not Resolved]
  - Dizziness [Recovered/Resolved]
  - Haematochezia [Recovered/Resolved]
  - Musculoskeletal chest pain [Unknown]

NARRATIVE: CASE EVENT DATE: 2020
